FAERS Safety Report 5951188-2 (Version None)
Quarter: 2008Q4

REPORT INFORMATION
  Report Type: 
  Country: None (occurrence: None)
  Receive Date: 20081112
  Receipt Date: 20081112
  Transmission Date: 20090506
  Serious: Yes (Disabling)
  Sender: FDA-Public Use
  Company Number: None

PATIENT
  Age: 80 Year
  Sex: Female
  Weight: 54.4316 kg

DRUGS (1)
  1. LIPITOR [Suspect]
     Indication: BLOOD CHOLESTEROL
     Dosage: ONCE DAILY PO
     Route: 048
     Dates: start: 20081029, end: 20081111

REACTIONS (3)
  - MEMORY IMPAIRMENT [None]
  - MULTI-ORGAN DISORDER [None]
  - PAIN [None]
